FAERS Safety Report 11327385 (Version 3)
Quarter: 2015Q3

REPORT INFORMATION
  Report Type: Report from Study
  Country: CO (occurrence: CO)
  Receive Date: 20150731
  Receipt Date: 20150923
  Transmission Date: 20151125
  Serious: Yes (Other)
  Sender: FDA-Public Use
  Company Number: CO-BRISTOL-MYERS SQUIBB COMPANY-BMS-2015-049828

PATIENT
  Age: 49 Year
  Sex: Male

DRUGS (1)
  1. CETUXIMAB [Suspect]
     Active Substance: CETUXIMAB
     Indication: HEAD AND NECK CANCER
     Dosage: 825 MG, Q2WK
     Route: 042
     Dates: start: 20150609, end: 20150623

REACTIONS (2)
  - Immunodeficiency [Unknown]
  - Radiation skin injury [Unknown]
